FAERS Safety Report 23254868 (Version 1)
Quarter: 2023Q4

REPORT INFORMATION
  Report Type: Spontaneous
  Country: US (occurrence: US)
  Receive Date: 20231203
  Receipt Date: 20231203
  Transmission Date: 20240110
  Serious: Yes (Other)
  Sender: FDA-Public Use
  Company Number: US-AMNEAL PHARMACEUTICALS-2023-AMRX-02900

PATIENT

DRUGS (3)
  1. ISOTRETINOIN [Suspect]
     Active Substance: ISOTRETINOIN
     Indication: Product used for unknown indication
     Dosage: UNK
     Route: 065
     Dates: start: 20230113, end: 2023
  2. MYORISAN [Suspect]
     Active Substance: ISOTRETINOIN
     Indication: Product used for unknown indication
     Dosage: MYORISAN 10 MG CAPSULE
     Route: 065
     Dates: start: 20221227
  3. MYORISAN [Suspect]
     Active Substance: ISOTRETINOIN
     Dosage: MYORISAN 40 MG CAPSULE
     Route: 065
     Dates: start: 20230223, end: 2023

REACTIONS (1)
  - Acne fulminans [Unknown]
